FAERS Safety Report 7399320-0 (Version None)
Quarter: 2011Q1

REPORT INFORMATION
  Report Type: 
  Country: None (occurrence: None)
  Receive Date: 20110328
  Receipt Date: 20110317
  Transmission Date: 20110831
  Serious: Yes (Death, Hospitalization, Other)
  Sender: FDA-Public Use
  Company Number: 022008

PATIENT
  Sex: Female
  Weight: 70 kg

DRUGS (11)
  1. TORASEMID [Concomitant]
  2. LEVETIRACETAM [Concomitant]
  3. METOPROLOL [Concomitant]
  4. TRAMADOL [Concomitant]
  5. MOLSIDOMIN [Concomitant]
  6. LEVOTHYROXINE SODIUM [Concomitant]
  7. URAPIDIL [Concomitant]
  8. LORAZEPAM [Concomitant]
  9. AMLODIPINE [Concomitant]
  10. RAMIPRIL [Concomitant]
  11. LACOSAMIDE [Suspect]
     Indication: EPILEPSY
     Dosage: 400 MG BID, INTRAVENOUS BOLUS
     Route: 040
     Dates: start: 20101007, end: 20101007

REACTIONS (8)
  - BRAIN OEDEMA [None]
  - CEREBRAL ATROPHY [None]
  - BLOOD PRESSURE SYSTOLIC INCREASED [None]
  - INCORRECT DOSE ADMINISTERED [None]
  - ENCEPHALITIS ALLERGIC [None]
  - ATRIOVENTRICULAR BLOCK COMPLETE [None]
  - CSF PROTEIN INCREASED [None]
  - PNEUMONIA ASPIRATION [None]
